FAERS Safety Report 16087645 (Version 2)
Quarter: 2019Q1

REPORT INFORMATION
  Report Type: Spontaneous
  Country: JP (occurrence: JP)
  Receive Date: 20190319
  Receipt Date: 20190325
  Transmission Date: 20190418
  Serious: Yes (Hospitalization, Other)
  Sender: FDA-Public Use
  Company Number: JP-CELLTRION INC.-2018JP025258

PATIENT

DRUGS (7)
  1. XELODA [Suspect]
     Active Substance: CAPECITABINE
     Dosage: UNK
     Route: 048
  2. XELODA [Suspect]
     Active Substance: CAPECITABINE
     Dosage: UNK
     Route: 048
  3. CISPLATIN. [Suspect]
     Active Substance: CISPLATIN
     Indication: HER-2 POSITIVE GASTRIC CANCER
  4. TRASTUZUMAB BS FOR I.V. INFUSION ?CTH? [Suspect]
     Active Substance: TRASTUZUMAB
     Indication: HER-2 POSITIVE GASTRIC CANCER
     Dosage: UNK
  5. TRASTUZUMAB BS FOR I.V. INFUSION ?CTH? [Suspect]
     Active Substance: TRASTUZUMAB
     Dosage: 300 MG/DAY
  6. TRASTUZUMAB BS FOR I.V. INFUSION ?CTH? [Suspect]
     Active Substance: TRASTUZUMAB
     Dosage: UNK
     Dates: start: 20181107
  7. XELODA [Suspect]
     Active Substance: CAPECITABINE
     Indication: HER-2 POSITIVE GASTRIC CANCER
     Dosage: UNK
     Route: 048

REACTIONS (1)
  - Ileus [Unknown]

NARRATIVE: CASE EVENT DATE: 20181106
